FAERS Safety Report 22320678 (Version 1)
Quarter: 2023Q2

REPORT INFORMATION
  Report Type: Spontaneous
  Country: US (occurrence: US)
  Receive Date: 20230515
  Receipt Date: 20230515
  Transmission Date: 20230721
  Serious: No
  Sender: FDA-Public Use
  Company Number: US-Prasco Laboratories-PRAS20230123

PATIENT
  Age: 63 Year
  Sex: Female

DRUGS (1)
  1. ESTRADIOL [Suspect]
     Active Substance: ESTRADIOL
     Indication: Vulvovaginal dryness
     Dosage: UNKNOWN
     Route: 067
     Dates: start: 202305, end: 202305

REACTIONS (4)
  - Vulvovaginal dryness [Recovering/Resolving]
  - Condition aggravated [Recovering/Resolving]
  - Application site pain [Recovering/Resolving]
  - Vulvovaginal burning sensation [Recovering/Resolving]

NARRATIVE: CASE EVENT DATE: 20230501
